FAERS Safety Report 9186233 (Version 2)
Quarter: 2013Q1

REPORT INFORMATION
  Report Type: Spontaneous
  Country: US (occurrence: None)
  Receive Date: 20130129
  Receipt Date: 20130301
  Transmission Date: 20140127
  Serious: Yes (Death)
  Sender: FDA-Public Use
  Company Number: ACO_33961_2013

PATIENT
  Age: 73 Year
  Sex: Male

DRUGS (12)
  1. AMPYRA (DALFAMPRIDINE) TABLET, 10MG [Suspect]
     Indication: PRODUCT USED FOR UNKNOWN INDICATION
  2. ASPIRIN (ACETYLSALICYLIC ACID) [Concomitant]
  3. SIMVASTATIN (SIMVASTATIN) [Concomitant]
  4. GLIPIZIDE (GLIPIZIDE) [Concomitant]
  5. LOSARTAN (LOSARTAN POTASSIUM) [Concomitant]
  6. OMEPRAZOLE (OMEPRAZOLE) [Concomitant]
  7. CARVEDILOL (CARVEDILOL) [Concomitant]
  8. METHYLPREDNISOLONE (METHLYLPREDNISOLONE) [Concomitant]
  9. ALLOPURINOL [Concomitant]
  10. SOLIFENACIN [Concomitant]
  11. FURSEMIDE (FUROSEMIDE) [Concomitant]
  12. DITIAZEM (DILTIAZEM HYDROCHLORIDE) [Concomitant]

REACTIONS (1)
  - Death [None]
